FAERS Safety Report 9194284 (Version 1)
Quarter: 2013Q1

REPORT INFORMATION
  Report Type: Spontaneous
  Country: FR (occurrence: FR)
  Receive Date: 20130327
  Receipt Date: 20130327
  Transmission Date: 20140127
  Serious: Yes (Death, Hospitalization, Other)
  Sender: FDA-Public Use
  Company Number: FR-PFIZER INC-2013095326

PATIENT
  Age: 83 Year
  Sex: Female
  Weight: 57 kg

DRUGS (1)
  1. TORISEL [Suspect]
     Indication: MANTLE CELL LYMPHOMA
     Dosage: 175 MG, WEEKLY
     Route: 042
     Dates: start: 20120627, end: 20120627

REACTIONS (12)
  - Disease progression [Fatal]
  - Mantle cell lymphoma [Fatal]
  - Ileus [Fatal]
  - Renal failure [Fatal]
  - Peritonitis [Fatal]
  - Rectal perforation [Fatal]
  - Deafness bilateral [Unknown]
  - Pancytopenia [Unknown]
  - Mucosal inflammation [Unknown]
  - Tachycardia [Recovered/Resolved]
  - Oral candidiasis [Unknown]
  - Aphthous stomatitis [Unknown]
